FAERS Safety Report 5282632-4 (Version None)
Quarter: 2007Q1

REPORT INFORMATION
  Report Type: 
  Country: None (occurrence: None)
  Receive Date: 20070331
  Receipt Date: 20070316
  Transmission Date: 20070707
  Serious: Yes (Hospitalization)
  Sender: FDA-Public Use
  Company Number: US-SHR-US-2007-009502

PATIENT
  Age: 49 Year
  Sex: Male

DRUGS (3)
  1. BETASERON [Suspect]
     Indication: RELAPSING-REMITTING MULTIPLE SCLEROSIS
     Dosage: UNK, UNK
     Route: 058
     Dates: start: 19980825, end: 20000727
  2. BETASERON [Suspect]
     Dosage: UNK, UNK
     Route: 058
     Dates: start: 20000817, end: 20021115
  3. BETASERON [Suspect]
     Dosage: 8 MIU, EVERY 2D
     Route: 058
     Dates: start: 20041117

REACTIONS (3)
  - DYSSTASIA [None]
  - MULTIPLE SCLEROSIS [None]
  - PAIN IN EXTREMITY [None]
